FAERS Safety Report 13885941 (Version 4)
Quarter: 2017Q4

REPORT INFORMATION
  Report Type: Spontaneous
  Country: JP (occurrence: JP)
  Receive Date: 20170821
  Receipt Date: 20171006
  Transmission Date: 20180320
  Serious: Yes (Hospitalization, Other)
  Sender: FDA-Public Use
  Company Number: JP-GLAXOSMITHKLINE-JP2017JPN126871

PATIENT
  Age: 15 Year
  Sex: Female
  Weight: 50 kg

DRUGS (3)
  1. LAMICTAL [Suspect]
     Active Substance: LAMOTRIGINE
     Indication: EPILEPSY
     Dosage: 50 MG, QD
     Route: 048
     Dates: start: 20170804, end: 20170809
  2. LAMICTAL [Suspect]
     Active Substance: LAMOTRIGINE
     Indication: CONVULSION PROPHYLAXIS
     Dosage: 200 MG, QD
     Route: 048
     Dates: start: 20170810, end: 20170814
  3. DEPAKENE [Concomitant]
     Active Substance: VALPROIC ACID
     Indication: EPILEPSY
     Dosage: 600 MG, QD
     Dates: end: 20170803

REACTIONS (11)
  - Oropharyngeal pain [Recovering/Resolving]
  - Oral mucosa erosion [Recovering/Resolving]
  - Epilepsy [Recovering/Resolving]
  - Drug titration error [Unknown]
  - Pyrexia [Recovering/Resolving]
  - Rash [Recovered/Resolved]
  - Lymphadenopathy [Recovering/Resolving]
  - Drug eruption [Recovered/Resolved]
  - White blood cell count decreased [Recovered/Resolved]
  - Nasopharyngitis [Recovering/Resolving]
  - Product use issue [Unknown]

NARRATIVE: CASE EVENT DATE: 20170804
